FAERS Safety Report 8318658-3 (Version None)
Quarter: 2012Q2

REPORT INFORMATION
  Report Type: 
  Country: None (occurrence: None)
  Receive Date: 20120427
  Receipt Date: 20120418
  Transmission Date: 20120825
  Serious: Yes (Hospitalization, Other)
  Sender: FDA-Public Use
  Company Number: US-ELI_LILLY_AND_COMPANY-US201009003350

PATIENT
  Sex: Female
  Weight: 98.8 kg

DRUGS (3)
  1. OXYGEN [Concomitant]
     Indication: SLEEP APNOEA SYNDROME
     Dosage: UNK, EACH EVENING
  2. FORTEO [Suspect]
     Indication: OSTEOPOROSIS
     Dosage: 20 UG, DAILY (1/D)
     Dates: start: 20100831
  3. FORTEO [Suspect]
     Dosage: 20 UG, DAILY (1/D)
     Dates: start: 20100831

REACTIONS (10)
  - OXYGEN SATURATION DECREASED [None]
  - LIMB DISCOMFORT [None]
  - INJECTION SITE HAEMATOMA [None]
  - NAUSEA [None]
  - PNEUMONIA [None]
  - INJECTION SITE PAIN [None]
  - BRONCHITIS [None]
  - INJECTION SITE ERYTHEMA [None]
  - HEADACHE [None]
  - PNEUMOTHORAX [None]
